FAERS Safety Report 12353520 (Version 1)
Quarter: 2016Q2

REPORT INFORMATION
  Report Type: Spontaneous
  Country: US (occurrence: US)
  Receive Date: 20160511
  Receipt Date: 20160511
  Transmission Date: 20160815
  Serious: No
  Sender: FDA-Public Use
  Company Number: US-ASTRAZENECA-2016SE49438

PATIENT

DRUGS (1)
  1. ENTOCORT [Suspect]
     Active Substance: BUDESONIDE
     Route: 055

REACTIONS (1)
  - Electrolyte imbalance [Unknown]
